FAERS Safety Report 7786287-6 (Version None)
Quarter: 2011Q3

REPORT INFORMATION
  Report Type: 
  Country: None (occurrence: None)
  Receive Date: 20110929
  Receipt Date: 20110921
  Transmission Date: 20111222
  Serious: Yes (Hospitalization)
  Sender: FDA-Public Use
  Company Number: PHHY2011CH84043

PATIENT
  Sex: Male

DRUGS (9)
  1. TRILEPTAL [Suspect]
     Indication: PARTIAL SEIZURES
     Dosage: 750 MG, DAILY
     Route: 048
     Dates: start: 20010101
  2. PIPERACILLIN [Concomitant]
     Dosage: 13.5 MG, UNK
     Route: 042
     Dates: start: 20110601, end: 20110711
  3. PRAVASTATIN [Concomitant]
     Dosage: 20 MG DAILY
  4. CIPROFLAXACIN [Suspect]
     Dosage: 1000 MG DAILY
     Route: 048
     Dates: start: 20110525
  5. ASPIRIN [Concomitant]
     Dosage: 100 MG DAILY
     Route: 048
  6. TAZOBACTAM [Concomitant]
     Dosage: 13.5 MG, UNK
     Route: 042
     Dates: start: 20110601, end: 20110711
  7. AMLODIPINE [Concomitant]
     Dosage: 5 MG DAILY
     Route: 048
  8. NEXIUM [Concomitant]
     Dosage: 40 MG DAILY
     Route: 048
  9. VANCOMYCIN [Concomitant]
     Dosage: 1500 MG, UNK
     Route: 042

REACTIONS (7)
  - GRAFT INFECTION [None]
  - HYPONATRAEMIA [None]
  - C-REACTIVE PROTEIN INCREASED [None]
  - LEUKOCYTOSIS [None]
  - INAPPROPRIATE ANTIDIURETIC HORMONE SECRETION [None]
  - BLOOD OSMOLARITY DECREASED [None]
  - URINE SODIUM INCREASED [None]
